FAERS Safety Report 4646121-X (Version None)
Quarter: 2005Q2

REPORT INFORMATION
  Report Type: 
  Country: None (occurrence: None)
  Receive Date: 20050427
  Receipt Date: 20040819
  Transmission Date: 20051028
  Serious: No
  Sender: FDA-Public Use
  Company Number: US-GLAXOSMITHKLINE-A0522788A

PATIENT
  Age: 79 Year
  Sex: Female
  Weight: 68.2 kg

DRUGS (2)
  1. ZOFRAN [Suspect]
     Indication: NAUSEA
     Dosage: 4MG SINGLE DOSE
     Route: 048
     Dates: start: 20040811, end: 20040811
  2. OXYGEN [Concomitant]

REACTIONS (6)
  - BLOOD PRESSURE INCREASED [None]
  - BURNING SENSATION [None]
  - DRY MOUTH [None]
  - IMMOBILE [None]
  - NAUSEA [None]
  - PANIC REACTION [None]
